FAERS Safety Report 6155782-8 (Version None)
Quarter: 2009Q2

REPORT INFORMATION
  Report Type: 
  Country: None (occurrence: None)
  Receive Date: 20090413
  Receipt Date: 20090331
  Transmission Date: 20091009
  Serious: Yes (Hospitalization, Disabling)
  Sender: FDA-Public Use
  Company Number: 2007-155874-NL

PATIENT
  Age: 22 Year
  Sex: Female
  Weight: 73 kg

DRUGS (1)
  1. NUVARING [Suspect]
     Indication: MENSTRUAL CYCLE MANAGEMENT
     Dosage: VAGINAL, 3 WEEKS IN; 1 WEEK OUT
     Route: 067
     Dates: start: 20061201, end: 20070305

REACTIONS (13)
  - ANXIETY [None]
  - BRAIN OEDEMA [None]
  - CEREBRAL HAEMORRHAGE [None]
  - DEPRESSION [None]
  - DIABETES MELLITUS [None]
  - EMBOLISM [None]
  - GRAND MAL CONVULSION [None]
  - INJURY [None]
  - ISCHAEMIC STROKE [None]
  - MIGRAINE [None]
  - NEPHROLITHIASIS [None]
  - SUPERIOR SAGITTAL SINUS THROMBOSIS [None]
  - URINARY TRACT INFECTION [None]
